FAERS Safety Report 11458709 (Version 1)
Quarter: 2015Q3

REPORT INFORMATION
  Report Type: Spontaneous
  Country: US (occurrence: US)
  Receive Date: 20150904
  Receipt Date: 20150904
  Transmission Date: 20151125
  Serious: Yes (Other)
  Sender: FDA-Public Use
  Company Number: US-FRESENIUS KABI-FK201504233

PATIENT
  Age: 36 Year
  Sex: Female

DRUGS (3)
  1. IFOSFAMIDE (MANUFACTURER UNKNOWN) [Suspect]
     Active Substance: IFOSFAMIDE
     Indication: DESMOPLASTIC SMALL ROUND CELL TUMOUR
     Route: 065
  2. DOXORUBICIN [Concomitant]
     Active Substance: DOXORUBICIN
     Indication: DESMOPLASTIC SMALL ROUND CELL TUMOUR
  3. MESNA. [Concomitant]
     Active Substance: MESNA
     Indication: DESMOPLASTIC SMALL ROUND CELL TUMOUR

REACTIONS (3)
  - Tongue disorder [Unknown]
  - Swollen tongue [Unknown]
  - Memory impairment [Unknown]
